FAERS Safety Report 25682163 (Version 1)
Quarter: 2025Q3

REPORT INFORMATION
  Report Type: Spontaneous
  Country: US (occurrence: US)
  Receive Date: 20250814
  Receipt Date: 20250814
  Transmission Date: 20251020
  Serious: No
  Sender: BAYER HEALTHCARE LLC
  Company Number: US-BAYER-2025A106667

PATIENT
  Age: 89 Year
  Sex: Female

DRUGS (3)
  1. MIRAFAST SOFT CHEWS [Suspect]
     Active Substance: MAGNESIUM HYDROXIDE
     Route: 048
     Dates: start: 202507, end: 202507
  2. MIRALAX [Suspect]
     Active Substance: POLYETHYLENE GLYCOL 3350
     Route: 048
  3. Pain reliever [Concomitant]
     Indication: Pain

REACTIONS (2)
  - Diarrhoea [Unknown]
  - Drug ineffective [Unknown]
